FAERS Safety Report 16966775 (Version 2)
Quarter: 2019Q4

REPORT INFORMATION
  Report Type: Spontaneous
  Country: US (occurrence: US)
  Receive Date: 20191028
  Receipt Date: 20191101
  Transmission Date: 20200122
  Serious: No
  Sender: FDA-Public Use
  Company Number: US-SA-2019SA292256

PATIENT
  Age: 56 Year
  Sex: Female

DRUGS (3)
  1. DUPIXENT [Suspect]
     Active Substance: DUPILUMAB
     Indication: DERMATITIS ATOPIC
     Dosage: 600 MG, 1X
     Dates: start: 20191010, end: 20191010
  2. DUPIXENT [Suspect]
     Active Substance: DUPILUMAB
     Dosage: 300 MG, QOW
     Route: 058
     Dates: start: 201910, end: 201910
  3. CYCLOSPORINE. [Concomitant]
     Active Substance: CYCLOSPORINE

REACTIONS (4)
  - Rash morbilliform [Unknown]
  - Sleep disorder [Unknown]
  - Skin haemorrhage [Unknown]
  - Pruritus [Unknown]

NARRATIVE: CASE EVENT DATE: 201910
